FAERS Safety Report 18272605 (Version 1)
Quarter: 2020Q3

REPORT INFORMATION
  Report Type: Spontaneous
  Country: US (occurrence: US)
  Receive Date: 20200916
  Receipt Date: 20200916
  Transmission Date: 20201103
  Serious: Yes (Hospitalization)
  Sender: FDA-Public Use
  Company Number: None

PATIENT
  Age: 67 Year
  Sex: Female
  Weight: 90.3 kg

DRUGS (4)
  1. MERCAPTOPURINE 18850MG [Suspect]
     Active Substance: MERCAPTOPURINE
     Dates: end: 20191012
  2. METHOTREXATE 817.5 MG [Suspect]
     Active Substance: METHOTREXATE
     Dates: end: 20191006
  3. PREDNISONE 3000MG [Suspect]
     Active Substance: PREDNISONE
     Dates: end: 20191121
  4. VINCRISTINE SULFATE 8MG [Suspect]
     Active Substance: VINCRISTINE SULFATE
     Dates: end: 20191117

REACTIONS (1)
  - Myelodysplastic syndrome [None]

NARRATIVE: CASE EVENT DATE: 20191114
